FAERS Safety Report 4455108-1 (Version None)
Quarter: 2004Q3

REPORT INFORMATION
  Report Type: 
  Country: None (occurrence: None)
  Receive Date: 20040917
  Receipt Date: 20040909
  Transmission Date: 20050211
  Serious: Yes (Hospitalization, Other)
  Sender: FDA-Public Use
  Company Number: GBWYE305519SEP03

PATIENT
  Age: 52 Year
  Sex: Male

DRUGS (11)
  1. RAPAMUNE [Suspect]
     Indication: IMMUNOSUPPRESSANT DRUG THERAPY
     Dosage: ORAL
     Route: 048
     Dates: start: 20020829
  2. CALCITRIOL [Concomitant]
  3. SIMVASTATIN [Concomitant]
  4. ADALAT [Concomitant]
  5. DOXAZOSIN [Concomitant]
  6. ASPIRIN [Concomitant]
  7. FUROSEMIDE [Concomitant]
  8. LOSEC (OMEPRAZOLE) [Concomitant]
  9. NASONEX [Concomitant]
  10. ATORVASTATIN CALCIUM [Concomitant]
  11. BENDROFLUAZIDE (BENDROFLUMETHIAZIDE) [Concomitant]

REACTIONS (6)
  - ADENOIDITIS [None]
  - CONDITION AGGRAVATED [None]
  - EPIGLOTTITIS [None]
  - GASTROOESOPHAGEAL REFLUX DISEASE [None]
  - POSTNASAL DRIP [None]
  - VOCAL CORD THICKENING [None]
